FAERS Safety Report 8388174-1 (Version None)
Quarter: 2012Q2

REPORT INFORMATION
  Report Type: 
  Country: None (occurrence: None)
  Receive Date: 20120525
  Receipt Date: 20120515
  Transmission Date: 20120825
  Serious: Yes (Other)
  Sender: FDA-Public Use
  Company Number: CA-JNJFOC-20120513495

PATIENT
  Sex: Female
  Weight: 44.9 kg

DRUGS (11)
  1. REMICADE [Suspect]
     Indication: CROHN'S DISEASE
     Route: 042
     Dates: start: 20100427
  2. AMITRIPTYLINE HCL [Concomitant]
     Route: 065
  3. GABAPENTIN [Concomitant]
     Route: 065
  4. DILAUDID [Concomitant]
     Route: 065
  5. ZOPLICONE [Concomitant]
     Route: 065
  6. ACTONEL [Concomitant]
     Route: 065
  7. SYNTHROID [Concomitant]
     Route: 065
  8. MIRTAZAPINE [Concomitant]
     Route: 065
  9. VITAMIN B-12 [Concomitant]
     Route: 065
  10. WARFARIN SODIUM [Concomitant]
     Route: 065
  11. VITAMIN D [Concomitant]
     Route: 065

REACTIONS (5)
  - ARTHRALGIA [None]
  - MALAISE [None]
  - MYALGIA [None]
  - PACKED RED BLOOD CELL TRANSFUSION [None]
  - FATIGUE [None]
